FAERS Safety Report 7121562-X (Version None)
Quarter: 2010Q4

REPORT INFORMATION
  Report Type: 
  Country: None (occurrence: None)
  Receive Date: 20101124
  Receipt Date: 20101119
  Transmission Date: 20110411
  Serious: Yes (Other)
  Sender: FDA-Public Use
  Company Number: US-US-EMD SERONO, INC.-7002917

PATIENT
  Sex: Female

DRUGS (5)
  1. REBIF [Suspect]
     Indication: MULTIPLE SCLEROSIS
     Route: 058
     Dates: start: 20090522
  2. BACLOFEN [Concomitant]
     Indication: PAIN
  3. BACLOFEN [Concomitant]
     Indication: MUSCLE SPASMS
  4. NEURONTIN [Concomitant]
     Indication: MUSCLE SPASMS
  5. NEURONTIN [Concomitant]
     Indication: PAIN

REACTIONS (5)
  - BIPOLAR DISORDER [None]
  - DEPRESSION [None]
  - FIBROMYALGIA [None]
  - MUSCLE SPASMS [None]
  - SLEEP DISORDER [None]
